FAERS Safety Report 23207798 (Version 2)
Quarter: 2023Q4

REPORT INFORMATION
  Report Type: Spontaneous
  Country: US (occurrence: US)
  Receive Date: 20231121
  Receipt Date: 20231207
  Transmission Date: 20240110
  Serious: No
  Sender: FDA-Public Use
  Company Number: US-drreddys-SPO/USA/23/0182767

PATIENT
  Age: 62 Year

DRUGS (1)
  1. ZENATANE [Suspect]
     Active Substance: ISOTRETINOIN
     Indication: Product used for unknown indication
     Dosage: RMA ISSUE DATE: 22 AUGUST  2023 05:12:26 PM, 25 SEPTEMBER 2023 04:15:50 PM

REACTIONS (1)
  - Therapy cessation [Unknown]
